FAERS Safety Report 7493573-6 (Version None)
Quarter: 2011Q2

REPORT INFORMATION
  Report Type: 
  Country: None (occurrence: None)
  Receive Date: 20110520
  Receipt Date: 20110506
  Transmission Date: 20111010
  Serious: Yes (Hospitalization)
  Sender: FDA-Public Use
  Company Number: DE-MYLANLABS-2011S1006179

PATIENT
  Age: 89 Year
  Sex: Female

DRUGS (6)
  1. AMLODIPINE [Interacting]
     Indication: HYPERTENSION
     Route: 048
     Dates: start: 20060101
  2. SIMVASTATIN [Concomitant]
     Indication: HYPERLIPIDAEMIA
     Route: 048
     Dates: start: 20060101
  3. NITROGLYCERIN [Suspect]
     Indication: CORONARY ARTERY DISEASE
     Route: 060
     Dates: start: 20060101
  4. IRBESARTAN + HYDROCHLOROTHIAZIDE [Interacting]
     Indication: CORONARY ARTERY DISEASE
     Dosage: 1 FILMTABLETTE ENTHALT IRBESARTAN 300 MG UND HYDROCHLOROTHIAZID 12.5 MG
     Route: 048
     Dates: start: 20060101
  5. METOPROLOL TARTRATE [Interacting]
     Indication: CORONARY ARTERY DISEASE
     Route: 048
     Dates: start: 20060101, end: 20110212
  6. PLAVIX [Concomitant]
     Indication: CORONARY ARTERY DISEASE
     Route: 048
     Dates: start: 20060101

REACTIONS (2)
  - DRUG INTERACTION [None]
  - SYNCOPE [None]
